FAERS Safety Report 5884392-2 (Version None)
Quarter: 2008Q3

REPORT INFORMATION
  Report Type: 
  Country: None (occurrence: None)
  Receive Date: 20080915
  Receipt Date: 20080903
  Transmission Date: 20090109
  Serious: Yes (Hospitalization, Other)
  Sender: FDA-Public Use
  Company Number: IE-PFIZER INC-2008071947

PATIENT
  Sex: Female

DRUGS (10)
  1. CHANTIX [Suspect]
     Indication: SMOKING CESSATION THERAPY
     Route: 048
     Dates: end: 20080708
  2. LIPITOR [Concomitant]
     Indication: BLOOD CHOLESTEROL INCREASED
     Route: 048
     Dates: start: 20080701
  3. LIPITOR [Concomitant]
     Indication: MYOCARDIAL ISCHAEMIA
  4. NU-SEALS ASPIRIN [Concomitant]
     Indication: MYOCARDIAL ISCHAEMIA
     Route: 048
     Dates: start: 20080701
  5. NEXIUM [Concomitant]
  6. IBUPROFEN [Concomitant]
  7. CARDICOR [Concomitant]
     Indication: MYOCARDIAL ISCHAEMIA
     Route: 048
     Dates: start: 20080601
  8. SERETIDE [Concomitant]
     Indication: CHRONIC OBSTRUCTIVE PULMONARY DISEASE
     Route: 055
     Dates: start: 20040101
  9. SERETIDE [Concomitant]
     Indication: ASTHMA
  10. CALCICHEW [Concomitant]
     Indication: OSTEOPENIA
     Dosage: TEXT:TWO TABLETS
     Route: 048

REACTIONS (7)
  - ABNORMAL BEHAVIOUR [None]
  - AGITATION [None]
  - BLOOD SODIUM DECREASED [None]
  - INSOMNIA [None]
  - PARANOIA [None]
  - POLYDIPSIA [None]
  - TOBACCO USER [None]
